FAERS Safety Report 7522072-8 (Version None)
Quarter: 2011Q2

REPORT INFORMATION
  Report Type: 
  Country: None (occurrence: None)
  Receive Date: 20110603
  Receipt Date: 20110524
  Transmission Date: 20111010
  Serious: Yes (Death, Hospitalization, Other)
  Sender: FDA-Public Use
  Company Number: JP-MPIJNJ-2010-02440

PATIENT

DRUGS (6)
  1. VELCADE [Suspect]
     Dosage: 1.1 MG, UNK
     Route: 042
     Dates: start: 20100312, end: 20100316
  2. AMLODIPINE [Concomitant]
     Indication: HYPERTENSION
     Dosage: 5 MG, UNK
     Route: 048
  3. VELCADE [Suspect]
     Indication: MULTIPLE MYELOMA
     Dosage: 1.1 MG, UNK
     Route: 042
     Dates: start: 20100108, end: 20100119
  4. DECADRON                           /00016002/ [Concomitant]
     Indication: MULTIPLE MYELOMA
     Dosage: 20 MG, UNK
     Route: 042
     Dates: start: 20100108, end: 20100120
  5. BONALON                            /01220301/ [Concomitant]
     Indication: OSTEOPOROSIS PROPHYLAXIS
     Dosage: UNK
     Route: 048
     Dates: start: 20091121
  6. BLOSTAR M [Concomitant]
     Indication: PROPHYLAXIS AGAINST GASTROINTESTINAL ULCER
     Dosage: 20 MG, UNK
     Route: 048
     Dates: start: 20090731

REACTIONS (4)
  - PNEUMONIA [None]
  - ANAEMIA [None]
  - HEPATITIS B [None]
  - DISEASE PROGRESSION [None]
